FAERS Safety Report 8587854 (Version 13)
Quarter: 2013Q3

REPORT INFORMATION
  Report Type: Report from Study
  Country: US (occurrence: US)
  Receive Date: 20120531
  Receipt Date: 20130816
  Transmission Date: 20140515
  Serious: Yes (Other)
  Sender: FDA-Public Use
  Company Number: PHEH2012US010789

PATIENT
  Age: 50 Year
  Sex: Female

DRUGS (19)
  1. AFINITOR [Suspect]
     Indication: ASTROCYTOMA, LOW GRADE
     Dosage: 10 MG, DAILY
     Route: 048
     Dates: start: 20120515, end: 20120723
  2. AFINITOR [Suspect]
     Dosage: 10 MG, DAILY
     Route: 048
     Dates: start: 20120918, end: 20130224
  3. AFINITOR [Suspect]
     Dosage: 5 MG, UNK
     Route: 048
     Dates: start: 20130225
  4. AFINITOR [Suspect]
     Dosage: 7.5 MG, QD
  5. SABRIL [Concomitant]
     Indication: CONVULSION
     Dosage: 500 MG, DAILY
     Route: 048
  6. TOPAMAX [Concomitant]
     Indication: CONVULSION
     Dosage: 150 MG, TID
     Route: 048
  7. LAMICTAL [Concomitant]
     Indication: CONVULSION
     Dosage: 300 MG, BID
     Route: 048
  8. KLONOPIN [Concomitant]
     Indication: SLEEP DISORDER
     Dosage: 2 MG, QD
  9. VITAMIN D [Concomitant]
  10. VITAMINS NOS [Concomitant]
  11. CALCIUM SUPPLEMENTS [Concomitant]
  12. SODIUM [Concomitant]
     Dosage: 650 MG, BID
  13. KEPPRA [Concomitant]
     Dosage: 400 MG, PER DAY
  14. KEPPRA [Concomitant]
     Dosage: 200 MG, PER DAY
  15. SODIUM BICARBONATE [Concomitant]
  16. DEPO PROVERA [Concomitant]
  17. TEGRETAL [Concomitant]
  18. LOTREL [Concomitant]
  19. SIMVASTATIN [Concomitant]
     Indication: BLOOD CHOLESTEROL INCREASED
     Dosage: 10 MG, QD
     Route: 048

REACTIONS (27)
  - Disorientation [Not Recovered/Not Resolved]
  - Convulsion [Recovered/Resolved]
  - Feeling abnormal [Recovered/Resolved]
  - Myalgia [Unknown]
  - Feeling hot [Recovered/Resolved]
  - Lethargy [Recovered/Resolved]
  - Dizziness [Not Recovered/Not Resolved]
  - Somnolence [Unknown]
  - Pain in extremity [Not Recovered/Not Resolved]
  - Burning sensation [Unknown]
  - Back pain [Not Recovered/Not Resolved]
  - Paraesthesia [Recovered/Resolved]
  - Glossodynia [Not Recovered/Not Resolved]
  - Gingival pain [Unknown]
  - Toothache [Unknown]
  - Rash [Recovered/Resolved]
  - Asthenia [Recovered/Resolved]
  - Blood cholesterol increased [Unknown]
  - Arthralgia [Recovering/Resolving]
  - Fatigue [Recovered/Resolved]
  - Headache [Unknown]
  - Pain [Unknown]
  - Oedema peripheral [Unknown]
  - Diarrhoea [Unknown]
  - Stomatitis [Recovered/Resolved]
  - Abdominal pain upper [Not Recovered/Not Resolved]
  - Nausea [Unknown]
